FAERS Safety Report 11613811 (Version 1)
Quarter: 2015Q4

REPORT INFORMATION
  Report Type: Spontaneous
  Country: DE (occurrence: DE)
  Receive Date: 20151008
  Receipt Date: 20151008
  Transmission Date: 20160304
  Serious: Yes (Disabling)
  Sender: FDA-Public Use
  Company Number: DE-MYLANLABS-2015M1033476

PATIENT

DRUGS (1)
  1. AZATHIOPRIN DURA N 25 MG FILMTABLETTEN [Suspect]
     Active Substance: AZATHIOPRINE
     Indication: RHEUMATIC DISORDER
     Dosage: 25 MG, UNK PATIENT ONLY TOOK ONE TABLET
     Route: 048

REACTIONS (5)
  - Abdominal pain upper [Recovered/Resolved]
  - Nausea [Recovered/Resolved]
  - Job dissatisfaction [Unknown]
  - Vomiting [Recovered/Resolved]
  - Burn oesophageal [Unknown]
